FAERS Safety Report 6444625-0 (Version None)
Quarter: 2009Q4

REPORT INFORMATION
  Report Type: 
  Country: None (occurrence: None)
  Receive Date: 20091118
  Receipt Date: 20091111
  Transmission Date: 20100525
  Serious: Yes (Other)
  Sender: FDA-Public Use
  Company Number: BR-ABBOTT-09P-020-0596715-00

PATIENT
  Sex: Female
  Weight: 76 kg

DRUGS (7)
  1. HUMIRA [Suspect]
     Indication: RHEUMATOID ARTHRITIS
     Route: 058
     Dates: end: 20090901
  2. METHLYPREDNISOLONE 1.5 MG, CYCLOBENZAPRINE 8 MG, FAMOTIDINE 20 MG [Concomitant]
     Indication: RHEUMATOID ARTHRITIS
     Route: 048
  3. METHOTREXATE [Concomitant]
     Indication: RHEUMATOID ARTHRITIS
     Route: 048
  4. LOSARTAN POTASSIUM [Concomitant]
     Indication: HYPERTENSION
     Route: 048
     Dates: start: 20090601
  5. CONJUGATED ESTROGENS [Concomitant]
     Indication: OESTROGEN REPLACEMENT THERAPY
     Route: 048
  6. SERENATA [Concomitant]
     Indication: HYPERTENSION
     Route: 048
     Dates: start: 20090801
  7. UNKNOWN MAGISTRAL FORMULA [Concomitant]
     Indication: RHEUMATOID ARTHRITIS
     Route: 048

REACTIONS (8)
  - DYSKINESIA [None]
  - DYSPNOEA [None]
  - HYPOAESTHESIA [None]
  - MALAISE [None]
  - RHEUMATOID ARTHRITIS [None]
  - SLEEP DISORDER [None]
  - SWELLING [None]
  - TACHYCARDIA [None]
